FAERS Safety Report 8362836-4 (Version None)
Quarter: 2012Q2

REPORT INFORMATION
  Report Type: 
  Country: None (occurrence: None)
  Receive Date: 20120516
  Receipt Date: 20120514
  Transmission Date: 20120825
  Serious: Yes (Other)
  Sender: FDA-Public Use
  Company Number: PHEH2011US00475

PATIENT
  Sex: Female

DRUGS (1)
  1. ZOMETA [Suspect]

REACTIONS (12)
  - BLOOD CHOLESTEROL INCREASED [None]
  - CONVULSION [None]
  - ANXIETY [None]
  - SPINAL CORD INJURY [None]
  - NECK PAIN [None]
  - PAIN [None]
  - INJURY [None]
  - PHYSICAL DISABILITY [None]
  - EMOTIONAL DISTRESS [None]
  - INFECTION [None]
  - OSTEONECROSIS OF JAW [None]
  - DEFORMITY [None]
